FAERS Safety Report 6826560-9 (Version None)
Quarter: 2010Q3

REPORT INFORMATION
  Report Type: 
  Country: None (occurrence: None)
  Receive Date: 20100709
  Receipt Date: 20100707
  Transmission Date: 20110219
  Serious: Yes (Death)
  Sender: FDA-Public Use
  Company Number: MX-B.I. PHARMACEUTICALS,INC./RIDGEFIELD-2010-MX-00070MX

PATIENT
  Age: 49 Year
  Sex: Male

DRUGS (3)
  1. APTIVUS [Suspect]
     Indication: ACQUIRED IMMUNODEFICIENCY SYNDROME
     Dosage: 2 CAPSULES DAILY
     Route: 048
     Dates: start: 20080729, end: 20090101
  2. RITONAVIR [Concomitant]
     Indication: ACQUIRED IMMUNODEFICIENCY SYNDROME
     Dosage: 2 CAPSULES DAILY
     Route: 048
     Dates: start: 20090729
  3. TRUVADA [Concomitant]
     Indication: ACQUIRED IMMUNODEFICIENCY SYNDROME
     Dosage: ONE TABLET DAILY
     Route: 048
     Dates: start: 20090729

REACTIONS (2)
  - CACHEXIA [None]
  - GASTROENTERITIS [None]
